FAERS Safety Report 6184323-4 (Version None)
Quarter: 2009Q2

REPORT INFORMATION
  Report Type: 
  Country: None (occurrence: None)
  Receive Date: 20090508
  Receipt Date: 20090430
  Transmission Date: 20091009
  Serious: Yes (Hospitalization)
  Sender: FDA-Public Use
  Company Number: CH-AVENTIS-200912358EU

PATIENT
  Age: 39 Year
  Sex: Male

DRUGS (10)
  1. CLEXANE [Suspect]
     Indication: PULMONARY EMBOLISM
     Route: 058
     Dates: start: 20090217, end: 20090222
  2. CLEXANE [Suspect]
     Route: 058
     Dates: start: 20090223, end: 20090223
  3. SINTROM [Suspect]
     Indication: PULMONARY EMBOLISM
     Route: 048
     Dates: start: 20090218, end: 20090225
  4. DAFALGAN                           /00020001/ [Suspect]
     Route: 048
     Dates: start: 20090201, end: 20090201
  5. TAVEGYL [Concomitant]
     Dosage: DOSE: 1 AMPOULE
     Dates: start: 20090218, end: 20090218
  6. PREDNISONE [Concomitant]
     Dates: start: 20090217, end: 20090217
  7. PREDNISONE [Concomitant]
     Dates: start: 20090218, end: 20090218
  8. MORPHINE [Concomitant]
     Route: 042
     Dates: start: 20090217, end: 20090221
  9. MORPHINE [Concomitant]
     Route: 048
     Dates: start: 20090222
  10. VOLTAREN [Concomitant]

REACTIONS (1)
  - HEPATOCELLULAR INJURY [None]
